FAERS Safety Report 11514410 (Version 1)
Quarter: 2015Q3

REPORT INFORMATION
  Report Type: Spontaneous
  Country: IT (occurrence: IT)
  Receive Date: 20150916
  Receipt Date: 20150916
  Transmission Date: 20151125
  Serious: Yes (Hospitalization)
  Sender: FDA-Public Use
  Company Number: IT-PFIZER INC-2015307761

PATIENT
  Age: 19 Year
  Sex: Female

DRUGS (1)
  1. METHYLPREDNISOLONE. [Suspect]
     Active Substance: METHYLPREDNISOLONE
     Indication: DYSHIDROTIC ECZEMA
     Dosage: 16 MG, TOTAL

REACTIONS (1)
  - Superinfection bacterial [Unknown]

NARRATIVE: CASE EVENT DATE: 20150815
